FAERS Safety Report 23286841 (Version 1)
Quarter: 2023Q4

REPORT INFORMATION
  Report Type: Spontaneous
  Country: FR (occurrence: FR)
  Receive Date: 20231212
  Receipt Date: 20231212
  Transmission Date: 20240110
  Serious: Yes (Other)
  Sender: FDA-Public Use
  Company Number: None

PATIENT
  Age: 67 Year
  Sex: Female

DRUGS (2)
  1. YERVOY [Suspect]
     Active Substance: IPILIMUMAB
     Indication: Malignant melanoma
     Route: 051
     Dates: start: 20211207, end: 20220120
  2. OPDIVO [Suspect]
     Active Substance: NIVOLUMAB
     Indication: Malignant melanoma
     Route: 051
     Dates: start: 20211207, end: 20221201

REACTIONS (1)
  - Peripheral T-cell lymphoma unspecified [Recovering/Resolving]

NARRATIVE: CASE EVENT DATE: 20220601
